FAERS Safety Report 9693041 (Version 1)
Quarter: 2013Q4

REPORT INFORMATION
  Report Type: Spontaneous
  Country: US (occurrence: None)
  Receive Date: 20131115
  Receipt Date: 20131115
  Transmission Date: 20140711
  Serious: Yes (Hospitalization)
  Sender: FDA-Public Use
  Company Number: None

PATIENT
  Age: 42 Year
  Sex: Female

DRUGS (2)
  1. GAMMAGARD LIQUID [Suspect]
     Indication: IMMUNODEFICIENCY
     Dosage: 30GM QMONTH INTRAVENOUS
     Route: 042
     Dates: start: 20131016, end: 20131016
  2. GAMMAGARD LIQUID [Suspect]
     Indication: IMMUNODEFICIENCY
     Dosage: 30GM QMONTH INTRAVENOUS
     Route: 042
     Dates: start: 20131016, end: 20131016

REACTIONS (4)
  - Cough [None]
  - Dyspnoea [None]
  - Dysphonia [None]
  - Laryngospasm [None]
